FAERS Safety Report 5682142-6 (Version None)
Quarter: 2008Q1

REPORT INFORMATION
  Report Type: 
  Country: None (occurrence: None)
  Receive Date: 20080327
  Receipt Date: 20080317
  Transmission Date: 20080703
  Serious: Yes (Other)
  Sender: FDA-Public Use
  Company Number: GB-RANBAXY-2008RR-13836

PATIENT

DRUGS (3)
  1. CIPROFLOXACIN [Suspect]
     Indication: LOWER RESPIRATORY TRACT INFECTION
     Dosage: 250 MG, BID
     Route: 048
     Dates: start: 20080122, end: 20080130
  2. PREDNISOLONE [Concomitant]
     Indication: ASTHMA
     Dosage: 40 MG, UNK
     Route: 048
     Dates: start: 20080125, end: 20080130
  3. ZOLPIDEM [Concomitant]
     Indication: INSOMNIA
     Dosage: 10 MG, UNK
     Route: 048
     Dates: start: 20080125

REACTIONS (2)
  - EMOTIONAL DISTRESS [None]
  - TONGUE DISCOLOURATION [None]
